FAERS Safety Report 26101588 (Version 1)
Quarter: 2025Q4

REPORT INFORMATION
  Report Type: Spontaneous
  Country: JP (occurrence: JP)
  Receive Date: 20251128
  Receipt Date: 20251128
  Transmission Date: 20260117
  Serious: Yes (Other)
  Sender: RANBAXY
  Company Number: JP-SUN PHARMACEUTICAL INDUSTRIES LTD-2025R1-537598

PATIENT
  Age: 52 Year
  Sex: Male

DRUGS (3)
  1. TRIAMCINOLONE [Suspect]
     Active Substance: TRIAMCINOLONE
     Indication: Diabetic retinal oedema
     Dosage: UNK (4MG/0.1ML)
  2. RANIBIZUMAB [Concomitant]
     Active Substance: RANIBIZUMAB
     Indication: Diabetic retinal oedema
     Dosage: UNK
  3. BROLUCIZUMAB [Concomitant]
     Active Substance: BROLUCIZUMAB
     Indication: Diabetic retinal oedema
     Dosage: UNK

REACTIONS (1)
  - Intraocular pressure increased [Recovering/Resolving]
